FAERS Safety Report 14220541 (Version 1)
Quarter: 2017Q4

REPORT INFORMATION
  Report Type: Spontaneous
  Country: ES (occurrence: ES)
  Receive Date: 20171124
  Receipt Date: 20171124
  Transmission Date: 20180321
  Serious: Yes (Hospitalization)
  Sender: FDA-Public Use
  Company Number: ES-ELI_LILLY_AND_COMPANY-ES201711006789

PATIENT
  Age: 63 Year
  Sex: Male

DRUGS (10)
  1. AMLODIPIN                          /00972401/ [Concomitant]
     Active Substance: AMLODIPINE BESYLATE
     Dosage: 10 DF, EACH MORNING
  2. LORAZEPAM. [Concomitant]
     Active Substance: LORAZEPAM
     Dosage: 1 MG, UNK
  3. LANTUS [Concomitant]
     Active Substance: INSULIN GLARGINE
     Dosage: 52 U, UNK
  4. HIBOR [Concomitant]
     Active Substance: BEMIPARIN SODIUM
     Dosage: 3500 DF, UNK
  5. IRBESARTAN. [Concomitant]
     Active Substance: IRBESARTAN
     Dosage: 150 DF, ONCE IN THE AFTERNOON
  6. TRULICITY [Suspect]
     Active Substance: DULAGLUTIDE
     Indication: PRODUCT USED FOR UNKNOWN INDICATION
     Dosage: 1.5 MG, UNKNOWN
     Route: 065
  7. ADIRO [Concomitant]
     Active Substance: ASPIRIN
     Dosage: 100 DF, ONCE IN THE AFTERNOON
  8. OMEPRAZOL                          /00661201/ [Concomitant]
     Active Substance: OMEPRAZOLE
  9. DUROGESIC [Concomitant]
     Active Substance: FENTANYL
     Dosage: 50 DF, UNK
  10. AMLODIPIN                          /00972401/ [Concomitant]
     Active Substance: AMLODIPINE BESYLATE
     Dosage: 10 DF, EACH EVENING

REACTIONS (4)
  - Aeromonas infection [Unknown]
  - Diarrhoea [Unknown]
  - Abdominal pain [Unknown]
  - Bacterial diarrhoea [Unknown]

NARRATIVE: CASE EVENT DATE: 20170806
